FAERS Safety Report 9660844 (Version 1)
Quarter: 2013Q4

REPORT INFORMATION
  Report Type: Spontaneous
  Country: US (occurrence: US)
  Receive Date: 20131031
  Receipt Date: 20131031
  Transmission Date: 20140711
  Serious: Yes (Other)
  Sender: FDA-Public Use
  Company Number: US-ENDO PHARMACEUTICALS INC.-HCDA20130094

PATIENT
  Age: 69 Year
  Sex: Male
  Weight: 99.88 kg

DRUGS (2)
  1. HYDROCODONE BITARTRATE AND ACETAMINOPHEN [Suspect]
     Indication: INJURY
     Dosage: 80-100/2600-3250 MG
     Route: 048
     Dates: start: 201305
  2. HYDROCODONE BITARTRATE AND ACETAMINOPHEN [Suspect]
     Indication: ROAD TRAFFIC ACCIDENT
     Dosage: 60/1950 MG
     Route: 048
     Dates: start: 2012, end: 201305

REACTIONS (2)
  - Intentional overdose [Not Recovered/Not Resolved]
  - Drug effect decreased [Not Recovered/Not Resolved]
